FAERS Safety Report 24427070 (Version 3)
Quarter: 2024Q4

REPORT INFORMATION
  Report Type: Spontaneous
  Country: CH (occurrence: CH)
  Receive Date: 20241011
  Receipt Date: 20241219
  Transmission Date: 20250114
  Serious: Yes (Other)
  Sender: ROCHE
  Company Number: CH-002147023-NVSC2024CH197486

PATIENT
  Sex: Female

DRUGS (1)
  1. XOLAIR [Suspect]
     Active Substance: OMALIZUMAB
     Indication: Angioedema
     Dosage: 300 MG, Q4W
     Route: 065
     Dates: start: 2023

REACTIONS (2)
  - Retinal detachment [Unknown]
  - Off label use [Unknown]
